FAERS Safety Report 11314513 (Version 1)
Quarter: 2015Q3

REPORT INFORMATION
  Report Type: Spontaneous
  Country: FR (occurrence: FR)
  Receive Date: 20150727
  Receipt Date: 20150727
  Transmission Date: 20151125
  Serious: Yes (Hospitalization)
  Sender: FDA-Public Use
  Company Number: FR-SA-2015SA106951

PATIENT
  Age: 83 Year
  Sex: Male

DRUGS (16)
  1. LYSINE ACETYLSALICYLATE [Suspect]
     Active Substance: ASPIRIN LYSINE
     Route: 048
     Dates: start: 20150512, end: 20150524
  2. LYSINE ACETYLSALICYLATE [Suspect]
     Active Substance: ASPIRIN LYSINE
     Route: 048
     Dates: start: 20150602, end: 20150607
  3. ATROVENT [Concomitant]
     Active Substance: IPRATROPIUM BROMIDE
  4. PLAVIX [Concomitant]
     Active Substance: CLOPIDOGREL BISULFATE
     Dosage: STRENGTH: 75 MG
  5. PARACETAMOL [Concomitant]
     Active Substance: ACETAMINOPHEN
  6. LOVENOX [Suspect]
     Active Substance: ENOXAPARIN SODIUM
     Route: 058
     Dates: start: 20150509, end: 20150607
  7. VENTOLINE [Concomitant]
     Active Substance: ALBUTEROL
  8. OMEPRAZOLE. [Concomitant]
     Active Substance: OMEPRAZOLE
  9. PRAVASTATIN [Concomitant]
     Active Substance: PRAVASTATIN\PRAVASTATIN SODIUM
     Dosage: STRENGTH: 20 MG
  10. KALEORID [Concomitant]
     Active Substance: POTASSIUM CHLORIDE
     Dosage: STRENGTH: 1000
  11. SOTALOL. [Concomitant]
     Active Substance: SOTALOL
     Dates: start: 20150516
  12. MICROLAX [Concomitant]
  13. SOTALOL. [Concomitant]
     Active Substance: SOTALOL
     Dosage: STRENGTH: 160 MG
  14. SPIRONOLACTONE. [Concomitant]
     Active Substance: SPIRONOLACTONE
     Dosage: STRENGTH:25 MG
  15. PANTOPRAZOLE [Concomitant]
     Active Substance: PANTOPRAZOLE SODIUM
     Dosage: STRENGTH: 20 MG
  16. FORLAX [Concomitant]
     Active Substance: POLYETHYLENE GLYCOL 4000

REACTIONS (3)
  - Gastrointestinal haemorrhage [Recovered/Resolved]
  - Duodenal ulcer [Recovering/Resolving]
  - Oesophagitis [Recovering/Resolving]

NARRATIVE: CASE EVENT DATE: 20150608
